FAERS Safety Report 13109664 (Version 1)
Quarter: 2017Q1

REPORT INFORMATION
  Report Type: Spontaneous
  Country: US (occurrence: US)
  Receive Date: 20170112
  Receipt Date: 20170112
  Transmission Date: 20170428
  Serious: Yes (Hospitalization)
  Sender: FDA-Public Use
  Company Number: US-ROCHE-1098919

PATIENT
  Age: 32 Year
  Sex: Male

DRUGS (9)
  1. OXAZEPAM. [Concomitant]
     Active Substance: OXAZEPAM
     Route: 065
  2. HEPARIN SOD [Concomitant]
     Route: 065
  3. ACTIVASE [Suspect]
     Active Substance: ALTEPLASE
     Indication: MYOCARDIAL INFARCTION
     Route: 065
  4. NITROGLYCERIN. [Concomitant]
     Active Substance: NITROGLYCERIN
  5. DIAZEPAM. [Concomitant]
     Active Substance: DIAZEPAM
  6. TEMAZEPAM. [Concomitant]
     Active Substance: TEMAZEPAM
     Route: 065
  7. ACETAMINOPHEN. [Concomitant]
     Active Substance: ACETAMINOPHEN
     Route: 065
  8. FOLIC ACID. [Concomitant]
     Active Substance: FOLIC ACID
     Route: 065
  9. LIDOCAINE. [Concomitant]
     Active Substance: LIDOCAINE
     Route: 065
     Dates: start: 19890115

REACTIONS (1)
  - Atrioventricular block complete [Unknown]
